FAERS Safety Report 17911337 (Version 1)
Quarter: 2020Q2

REPORT INFORMATION
  Report Type: Spontaneous
  Country: US (occurrence: US)
  Receive Date: 20200618
  Receipt Date: 20200618
  Transmission Date: 20200714
  Serious: Yes (Other)
  Sender: FDA-Public Use
  Company Number: US-ACTELION-A-CH2020-206054

PATIENT
  Age: 62 Year
  Sex: Female

DRUGS (12)
  1. ALOPURINOL [Concomitant]
     Active Substance: ALLOPURINOL
  2. CITALOPRAM [Concomitant]
     Active Substance: CITALOPRAM HYDROBROMIDE
  3. MONTELUKAST [Concomitant]
     Active Substance: MONTELUKAST SODIUM
  4. BOSENTAN. [Suspect]
     Active Substance: BOSENTAN
     Indication: PULMONARY ARTERIAL HYPERTENSION
     Dosage: UNK
     Route: 048
  5. ALENDRONATE [Concomitant]
     Active Substance: ALENDRONATE SODIUM
  6. TREPROSTINIL. [Concomitant]
     Active Substance: TREPROSTINIL
     Route: 042
  7. DIGOXIN. [Concomitant]
     Active Substance: DIGOXIN
  8. PRAVASTATIN. [Concomitant]
     Active Substance: PRAVASTATIN
  9. CELECOXIB. [Concomitant]
     Active Substance: CELECOXIB
  10. TADALAFIL. [Concomitant]
     Active Substance: TADALAFIL
     Route: 048
  11. RIVAROXABAN [Concomitant]
     Active Substance: RIVAROXABAN
  12. VALSARTAN. [Concomitant]
     Active Substance: VALSARTAN

REACTIONS (2)
  - Cardiac output decreased [Unknown]
  - Cardiac resynchronisation therapy [Unknown]
